FAERS Safety Report 24795913 (Version 4)
Quarter: 2025Q1

REPORT INFORMATION
  Report Type: Report from Study
  Country: IN (occurrence: IN)
  Receive Date: 20250101
  Receipt Date: 20250312
  Transmission Date: 20250408
  Serious: Yes (Hospitalization)
  Sender: ROCHE
  Company Number: IN-ROCHE-10000110789

PATIENT
  Age: 58 Year
  Sex: Female
  Weight: 83 kg

DRUGS (2)
  1. POLIVY [Suspect]
     Active Substance: POLATUZUMAB VEDOTIN-PIIQ
     Indication: Diffuse large B-cell lymphoma
     Route: 042
     Dates: start: 20241008
  2. POLIVY [Suspect]
     Active Substance: POLATUZUMAB VEDOTIN-PIIQ
     Route: 042

REACTIONS (17)
  - Abdominal distension [Unknown]
  - Spinal implantation [Unknown]
  - Off label use [Unknown]
  - Hypotension [Unknown]
  - Blood pressure systolic increased [Unknown]
  - Blood pressure diastolic decreased [Unknown]
  - Haemoglobin decreased [Unknown]
  - Alanine aminotransferase increased [Unknown]
  - Heart rate increased [Unknown]
  - Blood creatinine decreased [Unknown]
  - Muscular weakness [Unknown]
  - Rales [Unknown]
  - Hypertension [Unknown]
  - Dysuria [Unknown]
  - Erythema [Unknown]
  - Dermatitis [Unknown]
  - Neutropenia [Unknown]

NARRATIVE: CASE EVENT DATE: 20241008
